FAERS Safety Report 4566539-3 (Version None)
Quarter: 2005Q1

REPORT INFORMATION
  Report Type: 
  Country: None (occurrence: None)
  Receive Date: 20050126
  Receipt Date: 20050126
  Transmission Date: 20050727
  Serious: Yes (Hospitalization)
  Sender: FDA-Public Use
  Company Number: None

PATIENT
  Age: 59 Year
  Sex: Female
  Weight: 86.1834 kg

DRUGS (2)
  1. LEVOTHYROXINE .05 - FOREST PHARMACEUTICALS [Suspect]
     Indication: HYPOTHYROIDISM
     Dosage: 0.5  DAILY PO WITH 0.75 3 X WEEKLY
     Route: 048
     Dates: start: 20040429
  2. LEVOTHYROXINE .05 - FOREST PHARMACEUTICALS [Suspect]
     Indication: THYROIDECTOMY PARTIAL
     Dosage: 0.5  DAILY PO WITH 0.75 3 X WEEKLY
     Route: 048
     Dates: start: 20040429

REACTIONS (10)
  - BLOOD THYROID STIMULATING HORMONE INCREASED [None]
  - DRUG TOXICITY [None]
  - FEELING ABNORMAL [None]
  - GASTROINTESTINAL DISORDER [None]
  - MALAISE [None]
  - MYALGIA [None]
  - PALPITATIONS [None]
  - PHARMACEUTICAL PRODUCT COMPLAINT [None]
  - RASH [None]
  - WEIGHT DECREASED [None]
